FAERS Safety Report 7929824-0 (Version None)
Quarter: 2011Q4

REPORT INFORMATION
  Report Type: 
  Country: None (occurrence: None)
  Receive Date: 20111121
  Receipt Date: 20111114
  Transmission Date: 20120403
  Serious: Yes (Other)
  Sender: FDA-Public Use
  Company Number: FR-BRISTOL-MYERS SQUIBB COMPANY-15265127

PATIENT
  Age: 66 Year
  Sex: Male
  Weight: 76 kg

DRUGS (3)
  1. REYATAZ [Suspect]
     Indication: HIV INFECTION
     Route: 048
     Dates: start: 20050419, end: 20100202
  2. TRUVADA [Concomitant]
     Indication: HIV INFECTION
     Route: 048
     Dates: start: 20060110, end: 20110901
  3. NORVIR [Concomitant]
     Route: 048
     Dates: start: 20050419

REACTIONS (6)
  - PANCREATITIS [None]
  - HEPATOTOXICITY [None]
  - CHOLANGITIS [None]
  - RENAL COLIC [None]
  - CHOLESTASIS [None]
  - CHOLELITHIASIS [None]
